FAERS Safety Report 5833297-1 (Version None)
Quarter: 2008Q3

REPORT INFORMATION
  Report Type: 
  Country: None (occurrence: None)
  Receive Date: 20080804
  Receipt Date: 20080804
  Transmission Date: 20090109
  Serious: Yes (Other)
  Sender: FDA-Public Use
  Company Number: None

PATIENT
  Sex: Male
  Weight: 81.6475 kg

DRUGS (1)
  1. ADVAIR DISKUS 100/50 [Suspect]
     Indication: CHRONIC OBSTRUCTIVE PULMONARY DISEASE
     Dosage: 2X DAILY ORAL
     Route: 048
     Dates: end: 20020101

REACTIONS (10)
  - DERMATITIS CONTACT [None]
  - DYSPNOEA [None]
  - ERYTHEMA [None]
  - MUSCLE SPASMS [None]
  - OEDEMA PERIPHERAL [None]
  - PAIN [None]
  - PHOTOSENSITIVITY REACTION [None]
  - PRURITUS [None]
  - RECTAL HAEMORRHAGE [None]
  - SENSORY DISTURBANCE [None]
